FAERS Safety Report 18018914 (Version 1)
Quarter: 2020Q3

REPORT INFORMATION
  Report Type: Spontaneous
  Country: US (occurrence: US)
  Receive Date: 20200714
  Receipt Date: 20200714
  Transmission Date: 20201103
  Serious: No
  Sender: FDA-Public Use
  Company Number: US-BAYER-2020-141254

PATIENT
  Age: 63 Year
  Sex: Male

DRUGS (4)
  1. ALEVE [Suspect]
     Active Substance: NAPROXEN SODIUM
     Indication: PAIN
     Dosage: 1 DF
     Route: 048
     Dates: start: 202006
  2. ALEVE [Suspect]
     Active Substance: NAPROXEN SODIUM
     Indication: PAIN
     Dosage: 1 DF
     Route: 048
     Dates: start: 20200713
  3. COZAAR [Concomitant]
     Active Substance: LOSARTAN POTASSIUM
  4. ONE A DAY MENS [Concomitant]
     Active Substance: VITAMINS

REACTIONS (1)
  - Product use issue [Unknown]
